FAERS Safety Report 19366292 (Version 1)
Quarter: 2021Q2

REPORT INFORMATION
  Report Type: Report from Study
  Country: US (occurrence: US)
  Receive Date: 20210602
  Receipt Date: 20210602
  Transmission Date: 20210717
  Serious: No
  Sender: FDA-Public Use
  Company Number: US-DOVA PHARMACEUTICALS INC.-DOV-000953

PATIENT
  Sex: Male

DRUGS (5)
  1. DOPTELET [Suspect]
     Active Substance: AVATROMBOPAG MALEATE
     Indication: SECONDARY THROMBOCYTOSIS
     Dosage: 40 MILLIGRAM, QD
     Route: 048
  2. DOPTELET [Suspect]
     Active Substance: AVATROMBOPAG MALEATE
     Indication: GASTROINTESTINAL DISORDER
  3. INSULIN [Suspect]
     Active Substance: INSULIN NOS
     Indication: DIABETES MELLITUS
     Dosage: UNK
  4. OCTREOTIDE. [Suspect]
     Active Substance: OCTREOTIDE
     Indication: PRODUCT USED FOR UNKNOWN INDICATION
     Dosage: UNK
  5. DOPTELET [Suspect]
     Active Substance: AVATROMBOPAG MALEATE
     Indication: SHORT-BOWEL SYNDROME

REACTIONS (1)
  - Injection site bruising [Not Recovered/Not Resolved]
